FAERS Safety Report 7641947-2 (Version None)
Quarter: 2011Q3

REPORT INFORMATION
  Report Type: 
  Country: None (occurrence: None)
  Receive Date: 20110728
  Receipt Date: 20110702
  Transmission Date: 20111222
  Serious: No
  Sender: FDA-Public Use
  Company Number: US-BAYER-2011-059327

PATIENT
  Sex: Female

DRUGS (3)
  1. EXCEDRIN (MIGRAINE) [Concomitant]
  2. BENADRYL [Concomitant]
     Dosage: 3 DF, UNK
  3. ALEVE (CAPLET) [Suspect]
     Indication: HEADACHE
     Dosage: 10 DF, UNK
     Route: 048

REACTIONS (1)
  - NO ADVERSE EVENT [None]
